FAERS Safety Report 12115784 (Version 1)
Quarter: 2016Q1

REPORT INFORMATION
  Report Type: Spontaneous
  Country: US (occurrence: US)
  Receive Date: 20160225
  Receipt Date: 20160225
  Transmission Date: 20160526
  Serious: No
  Sender: FDA-Public Use
  Company Number: US-PFIZER INC-2016108732

PATIENT
  Age: 58 Year
  Sex: Female

DRUGS (2)
  1. ABILIFY [Suspect]
     Active Substance: ARIPIPRAZOLE
     Dosage: 2 MG, UNK
  2. PRISTIQ EXTENDED RELEASE [Suspect]
     Active Substance: DESVENLAFAXINE SUCCINATE
     Dosage: UNK

REACTIONS (19)
  - Hostility [Unknown]
  - Fatigue [Unknown]
  - Disturbance in attention [Unknown]
  - Emotional disorder [Unknown]
  - Decreased interest [Unknown]
  - Anxiety [Unknown]
  - Irritability [Unknown]
  - Memory impairment [Unknown]
  - Libido decreased [Unknown]
  - Social avoidant behaviour [Unknown]
  - Initial insomnia [Unknown]
  - Feeling abnormal [Unknown]
  - Middle insomnia [Unknown]
  - Asthenia [Unknown]
  - Restlessness [Unknown]
  - Hypersomnia [Unknown]
  - Aggression [Unknown]
  - Depressed mood [Unknown]
  - Tension [Unknown]
